FAERS Safety Report 25104308 (Version 1)
Quarter: 2025Q1

REPORT INFORMATION
  Report Type: Spontaneous
  Country: US (occurrence: US)
  Receive Date: 20250321
  Receipt Date: 20250321
  Transmission Date: 20250409
  Serious: No
  Sender: ACADIA PHARMACEUTICALS
  Company Number: US-ACADIA PHARMACEUTICALS INC.-ACA-2025-TRF-002799

PATIENT
  Sex: Female

DRUGS (5)
  1. DAYBUE [Suspect]
     Active Substance: TROFINETIDE
     Indication: Product used for unknown indication
     Dosage: 6000 MILLIGRAM (25 ML), BID
     Route: 048
  2. FAMOTIDINE [Concomitant]
     Active Substance: FAMOTIDINE
  3. BRIVIACT [Concomitant]
     Active Substance: BRIVARACETAM
  4. OXCARBAZEPINE [Concomitant]
     Active Substance: OXCARBAZEPINE
  5. CLONAZEPAM [Concomitant]
     Active Substance: CLONAZEPAM

REACTIONS (1)
  - Vitamin D increased [Unknown]
